FAERS Safety Report 19925079 (Version 2)
Quarter: 2021Q4

REPORT INFORMATION
  Report Type: Report from Study
  Country: CA (occurrence: CA)
  Receive Date: 20211006
  Receipt Date: 20211130
  Transmission Date: 20220303
  Serious: Yes (Other)
  Sender: FDA-Public Use
  Company Number: CA-JNJFOC-20210330289

PATIENT
  Age: 55 Year
  Sex: Female
  Weight: 94 kg

DRUGS (8)
  1. REMICADE [Suspect]
     Active Substance: INFLIXIMAB
     Indication: Crohn^s disease
     Dosage: ON 29-MAY-2013 THE PATIENT RECEIVED DOSE
     Route: 042
     Dates: start: 20130521
  2. REMICADE [Suspect]
     Active Substance: INFLIXIMAB
     Indication: Hidradenitis
     Route: 042
  3. REMICADE [Suspect]
     Active Substance: INFLIXIMAB
     Route: 042
     Dates: start: 20210907
  4. REMICADE [Suspect]
     Active Substance: INFLIXIMAB
     Route: 042
     Dates: start: 20130705
  5. LASIX [Concomitant]
     Active Substance: FUROSEMIDE
     Indication: Product used for unknown indication
     Route: 065
  6. SAXENDA [Concomitant]
     Active Substance: LIRAGLUTIDE
     Indication: Product used for unknown indication
     Route: 065
  7. CETIRIZINE HYDROCHLORIDE [Concomitant]
     Active Substance: CETIRIZINE HYDROCHLORIDE
     Indication: Product used for unknown indication
     Route: 065
  8. COVID-19 VACCINE [Concomitant]
     Indication: COVID-19 prophylaxis
     Route: 065
     Dates: start: 20210413

REACTIONS (10)
  - Chronic kidney disease [Unknown]
  - Foot fracture [Unknown]
  - Escherichia urinary tract infection [Recovered/Resolved]
  - Pyelonephritis acute [Not Recovered/Not Resolved]
  - Gout [Recovering/Resolving]
  - Infusion site extravasation [Recovered/Resolved]
  - Erythema [Recovered/Resolved]
  - Back pain [Recovered/Resolved]
  - Vaginal infection [Recovered/Resolved]
  - Rash [Recovering/Resolving]

NARRATIVE: CASE EVENT DATE: 20210216
